APPROVED DRUG PRODUCT: ACHROMYCIN
Active Ingredient: TETRACYCLINE HYDROCHLORIDE
Strength: 10MG/GM
Dosage Form/Route: OINTMENT;OPHTHALMIC
Application: N050266 | Product #001
Applicant: STORZ OPHTHALMICS INC SUB AMERICAN CYANAMID CO
Approved: Approved Prior to Jan 1, 1982 | RLD: No | RS: No | Type: DISCN